FAERS Safety Report 4788028-3 (Version None)
Quarter: 2005Q3

REPORT INFORMATION
  Report Type: 
  Country: None (occurrence: None)
  Receive Date: 20050914
  Receipt Date: 20050808
  Transmission Date: 20060218
  Serious: Yes (Other)
  Sender: FDA-Public Use
  Company Number: 413529

PATIENT
  Sex: Female

DRUGS (1)
  1. BONIVA [Suspect]
     Dates: start: 20050806

REACTIONS (6)
  - ABDOMINAL PAIN UPPER [None]
  - DIARRHOEA [None]
  - FATIGUE [None]
  - NECK PAIN [None]
  - PYREXIA [None]
  - STOMACH DISCOMFORT [None]
